FAERS Safety Report 10906839 (Version 1)
Quarter: 2015Q1

REPORT INFORMATION
  Report Type: Spontaneous
  Country: US (occurrence: None)
  Receive Date: 20150309
  Receipt Date: 20150309
  Transmission Date: 20150721
  Serious: Yes (Hospitalization, Other)
  Sender: FDA-Public Use
  Company Number: C-15-028

PATIENT
  Age: 45 Year
  Sex: Female

DRUGS (1)
  1. PHENTERMINE [Suspect]
     Active Substance: PHENTERMINE
     Indication: WEIGHT DECREASED
     Dosage: QD-BID
     Route: 048

REACTIONS (4)
  - Confusional state [None]
  - Headache [None]
  - Subarachnoid haemorrhage [None]
  - Heart rate increased [None]
